FAERS Safety Report 9485733 (Version 1)
Quarter: 2013Q3

REPORT INFORMATION
  Report Type: Spontaneous
  Country: US (occurrence: None)
  Receive Date: 20130827
  Receipt Date: 20130827
  Transmission Date: 20140515
  Serious: Yes (Other)
  Sender: FDA-Public Use
  Company Number: None

PATIENT
  Age: 73 Year
  Sex: Male

DRUGS (4)
  1. ATORVASTATIN [Suspect]
     Indication: HYPERTENSION
     Route: 048
     Dates: start: 20130703, end: 20130820
  2. LISIHNOPRIL [Concomitant]
  3. AMIODIPINE BESYLATE 2.5 MG, GREENSTONE BRAND [Concomitant]
  4. METOPROLOL [Concomitant]

REACTIONS (4)
  - Myalgia [None]
  - Product substitution issue [None]
  - Chromaturia [None]
  - Therapeutic response unexpected with drug substitution [None]
